FAERS Safety Report 8356636-9 (Version None)
Quarter: 2012Q2

REPORT INFORMATION
  Report Type: 
  Country: None (occurrence: None)
  Receive Date: 20120514
  Receipt Date: 20120509
  Transmission Date: 20120825
  Serious: Yes (Other)
  Sender: FDA-Public Use
  Company Number: PHHY2012CL039988

PATIENT
  Age: 79 Year
  Sex: Female

DRUGS (2)
  1. ZOLEDRONOC ACID [Suspect]
     Dosage: 5 MG, UNK
     Route: 042
     Dates: start: 20100101
  2. VITAMINS NOS [Concomitant]
     Dosage: UNK UKN, UNK

REACTIONS (2)
  - HEPATIC NEOPLASM [None]
  - PANCREATIC NEOPLASM [None]
